FAERS Safety Report 18435883 (Version 1)
Quarter: 2020Q4

REPORT INFORMATION
  Report Type: Spontaneous
  Country: US (occurrence: US)
  Receive Date: 20201028
  Receipt Date: 20201028
  Transmission Date: 20210114
  Serious: No
  Sender: FDA-Public Use
  Company Number: None

PATIENT
  Sex: Male
  Weight: 58.6 kg

DRUGS (2)
  1. CARBOPLATIN (214240) [Suspect]
     Active Substance: CARBOPLATIN
     Dates: end: 20190717
  2. DOCETAXEL 97MG [Suspect]
     Active Substance: DOCETAXEL
     Dates: end: 20190717

REACTIONS (1)
  - Lymphocyte count decreased [None]

NARRATIVE: CASE EVENT DATE: 20190718
